FAERS Safety Report 9196725 (Version 1)
Quarter: 2013Q1

REPORT INFORMATION
  Report Type: Spontaneous
  Country: US (occurrence: US)
  Receive Date: 20130328
  Receipt Date: 20130328
  Transmission Date: 20140127
  Serious: Yes (Other)
  Sender: FDA-Public Use
  Company Number: US-AMGEN-USASP2013019539

PATIENT
  Sex: Female

DRUGS (1)
  1. XGEVA [Suspect]
     Indication: BREAST CANCER

REACTIONS (8)
  - Cerebrovascular accident [Unknown]
  - Palpitations [Unknown]
  - Bruxism [Unknown]
  - Myalgia [Unknown]
  - Muscle tightness [Unknown]
  - Muscle disorder [Unknown]
  - Asthenia [Unknown]
  - Dyspnoea [Unknown]
